FAERS Safety Report 5240698-1 (Version None)
Quarter: 2007Q1

REPORT INFORMATION
  Report Type: 
  Country: None (occurrence: None)
  Receive Date: 20061208
  Receipt Date: 20051012
  Transmission Date: 20070707
  Serious: Yes (Other)
  Sender: FDA-Public Use
  Company Number: 2005UW15329

PATIENT
  Age: 88 Year
  Sex: Female
  Weight: 68.038 kg

DRUGS (16)
  1. CRESTOR [Suspect]
     Indication: BLOOD CHOLESTEROL INCREASED
     Dosage: 10 MG PO
     Route: 048
  2. NORVASC [Concomitant]
  3. TOPROL-XL [Concomitant]
  4. SYNTHROID [Concomitant]
  5. OGEN [Concomitant]
  6. COQ10 [Concomitant]
  7. VITAMIN B COMPLEX CAP [Concomitant]
  8. GLUCOSAMINE SULFATE [Concomitant]
  9. GINSENG [Concomitant]
  10. MAGNESIUM WITH ZINC [Concomitant]
  11. ANTIVERT [Concomitant]
  12. PHENERGAN HCL [Concomitant]
  13. VITAMIN E [Concomitant]
  14. KELP [Concomitant]
  15. MULTI-VITAMIN [Concomitant]
  16. ZINC [Concomitant]

REACTIONS (1)
  - VISION BLURRED [None]
